FAERS Safety Report 18571197 (Version 1)
Quarter: 2020Q4

REPORT INFORMATION
  Report Type: Spontaneous
  Country: US (occurrence: US)
  Receive Date: 20201202
  Receipt Date: 20201202
  Transmission Date: 20210114
  Serious: Yes (Death, Other)
  Sender: FDA-Public Use
  Company Number: US-PURDUE-USA-2020-0178054

PATIENT
  Sex: Male

DRUGS (2)
  1. OXYCONTIN [Suspect]
     Active Substance: OXYCODONE HYDROCHLORIDE
     Indication: PRODUCT USED FOR UNKNOWN INDICATION
     Dosage: UNK, UNK
     Route: 048
  2. HYDROMORPHONE TABLETS [Suspect]
     Active Substance: HYDROMORPHONE
     Indication: PRODUCT USED FOR UNKNOWN INDICATION
     Dosage: UNK, UNK
     Route: 048

REACTIONS (9)
  - Disturbance in social behaviour [Unknown]
  - Drug dependence [Unknown]
  - Personality change [Unknown]
  - General physical health deterioration [Unknown]
  - Emotional disorder [Unknown]
  - Psychotic disorder [Unknown]
  - Pneumonia [Fatal]
  - Apathy [Unknown]
  - Mental impairment [Unknown]
